FAERS Safety Report 24089688 (Version 1)
Quarter: 2024Q3

REPORT INFORMATION
  Report Type: Spontaneous
  Country: US (occurrence: US)
  Receive Date: 20240715
  Receipt Date: 20240715
  Transmission Date: 20241017
  Serious: Yes (Hospitalization)
  Sender: MYLAN
  Company Number: US-MYLANLABS-2024M1063709

PATIENT
  Age: 51 Year
  Sex: Female

DRUGS (8)
  1. PREDNISONE [Suspect]
     Active Substance: PREDNISONE
     Indication: Eosinophilic myocarditis
     Dosage: UNK
     Route: 048
  2. BUMEX [Suspect]
     Active Substance: BUMETANIDE
     Indication: Eosinophilic myocarditis
     Dosage: 2.5 MILLIGRAM, BID
     Route: 048
  3. BUMEX [Suspect]
     Active Substance: BUMETANIDE
     Dosage: 2 MILLIGRAM, QD
     Route: 048
  4. ELIQUIS [Suspect]
     Active Substance: APIXABAN
     Indication: Eosinophilic myocarditis
     Dosage: 5 MILLIGRAM, BID
     Route: 065
  5. NUCALA [Suspect]
     Active Substance: MEPOLIZUMAB
     Indication: Eosinophilic myocarditis
     Dosage: 300 MILLIGRAM;  EVERY FOUR WEEKS
     Route: 058
  6. HEPARIN [Concomitant]
     Active Substance: HEPARIN SODIUM
     Indication: Thrombosis
     Dosage: UNK, INFUSION
     Route: 065
  7. DOBUTAMINE [Concomitant]
     Active Substance: DOBUTAMINE HYDROCHLORIDE
     Indication: Cardiac failure acute
     Dosage: UNK
     Route: 065
  8. METHYLPREDNISOLONE [Concomitant]
     Active Substance: METHYLPREDNISOLONE
     Indication: Hypereosinophilic syndrome
     Dosage: UNK
     Route: 065

REACTIONS (1)
  - Drug ineffective [Unknown]
